FAERS Safety Report 6356843-0 (Version None)
Quarter: 2009Q3

REPORT INFORMATION
  Report Type: 
  Country: None (occurrence: None)
  Receive Date: 20090915
  Receipt Date: 20090911
  Transmission Date: 20100115
  Serious: Yes (Other)
  Sender: FDA-Public Use
  Company Number: FR-WYE-G04427209

PATIENT
  Age: 7 Year
  Sex: Male

DRUGS (2)
  1. REFACTO [Suspect]
     Indication: FACTOR VIII DEFICIENCY
     Route: 042
     Dates: start: 20090623, end: 20090101
  2. REFACTO [Suspect]
     Dosage: UNKNOWN
     Route: 042
     Dates: start: 20090101

REACTIONS (2)
  - DRUG INEFFECTIVE [None]
  - HAEMARTHROSIS [None]
